FAERS Safety Report 9268838 (Version 2)
Quarter: 2013Q3

REPORT INFORMATION
  Report Type: Spontaneous
  Country: US (occurrence: US)
  Receive Date: 20130502
  Receipt Date: 20130730
  Transmission Date: 20140515
  Serious: No
  Sender: FDA-Public Use
  Company Number: US-009507513-1304USA010817

PATIENT
  Sex: Female

DRUGS (1)
  1. PEGINTRON [Suspect]
     Dosage: REDIPEN,120 MICROGRAM, WEEKLY
     Route: 058
     Dates: start: 20130404

REACTIONS (5)
  - Injection site rash [Unknown]
  - Amnesia [Unknown]
  - Dizziness [Unknown]
  - Drug dose omission [Unknown]
  - Product quality issue [Unknown]
